FAERS Safety Report 8739989 (Version 2)
Quarter: 2012Q4

REPORT INFORMATION
  Report Type: 
  Country: US (occurrence: US)
  Receive Date: 20120823
  Receipt Date: 20120927
  Transmission Date: 20130627
  Serious: No
  Sender: FDA-Public Use
  Company Number: US-B.I. PHARMACEUTICALS,INC./RIDGEFIELD-2012-BP-20240BP

PATIENT
  Age: 64 None
  Sex: Female
  Weight: 68.95 kg

DRUGS (1)
  1. SPIRIVA [Suspect]
     Dosage: 18 mcg
     Route: 055
     Dates: start: 20100113

REACTIONS (1)
  - Night sweats [Not Recovered/Not Resolved]
